FAERS Safety Report 6794770-5 (Version None)
Quarter: 2010Q2

REPORT INFORMATION
  Report Type: 
  Country: None (occurrence: None)
  Receive Date: 20100625
  Receipt Date: 20100311
  Transmission Date: 20101027
  Serious: Yes (Other)
  Sender: FDA-Public Use
  Company Number: US-ASTRAZENECA-2009UW03726

PATIENT
  Age: 71 Year
  Sex: Female
  Weight: 68 kg

DRUGS (11)
  1. SEROQUEL [Suspect]
     Indication: DEPRESSION
     Route: 048
     Dates: start: 20020101, end: 20040101
  2. SEROQUEL [Suspect]
     Route: 048
     Dates: start: 20031120
  3. ZYPREXA [Concomitant]
     Dates: start: 20050101
  4. SYNTHROID [Concomitant]
     Route: 048
     Dates: start: 20031120
  5. ETHANOL [Concomitant]
     Route: 048
     Dates: start: 20031120
  6. LIPITOR [Concomitant]
     Route: 048
     Dates: start: 20031120
  7. DIGOXIN [Concomitant]
     Dosage: 0.25 DAILY
     Route: 048
     Dates: start: 20031120
  8. EVISTA [Concomitant]
     Route: 048
     Dates: start: 20031120
  9. EFFEXOR [Concomitant]
     Dates: start: 20031120
  10. REMERON [Concomitant]
     Dates: start: 20031120
  11. KLONOPIN [Concomitant]
     Dates: start: 20031120

REACTIONS (6)
  - CEREBROVASCULAR ACCIDENT [None]
  - DIABETES MELLITUS [None]
  - GASTROENTERITIS VIRAL [None]
  - HYPERTENSION [None]
  - NEUROPATHY PERIPHERAL [None]
  - OVERDOSE [None]
